FAERS Safety Report 15996008 (Version 1)
Quarter: 2019Q1

REPORT INFORMATION
  Report Type: Spontaneous
  Country: US (occurrence: US)
  Receive Date: 20190222
  Receipt Date: 20190222
  Transmission Date: 20190418
  Serious: No
  Sender: FDA-Public Use
  Company Number: US-009507513-1902USA008495

PATIENT
  Sex: Female

DRUGS (1)
  1. NEXPLANON [Suspect]
     Active Substance: ETONOGESTREL
     Dosage: 1 IMPLANT
     Route: 059

REACTIONS (4)
  - Implant site erythema [Recovered/Resolved]
  - Implant site cellulitis [Recovered/Resolved]
  - Implant site extravasation [Unknown]
  - Implant site swelling [Recovered/Resolved]

NARRATIVE: CASE EVENT DATE: 201902
